FAERS Safety Report 8902714 (Version 5)
Quarter: 2013Q3

REPORT INFORMATION
  Report Type: Spontaneous
  Country: US (occurrence: US)
  Receive Date: 20121112
  Receipt Date: 20130805
  Transmission Date: 20140515
  Serious: Yes (Hospitalization, Disabling, Other)
  Sender: FDA-Public Use
  Company Number: US-009507513-1211USA004398

PATIENT
  Sex: Female
  Weight: 63.49 kg

DRUGS (6)
  1. FOSAMAX [Suspect]
     Indication: BONE DENSITY DECREASED
     Dosage: 70 MG, QD
     Route: 048
     Dates: end: 201106
  2. FOSAMAX [Suspect]
     Indication: OSTEOPENIA
     Dosage: 70 MG, QW
     Route: 048
  3. ALENDRONATE SODIUM [Suspect]
  4. CALCIUM (UNSPECIFIED) [Concomitant]
     Indication: BONE DENSITY DECREASED
     Dosage: QD
  5. CENTRUM (MINERALS (UNSPECIFIED) (+) VITAMINS (UNSPECIFIED)) [Concomitant]
     Dosage: UNK, QD
     Dates: start: 1995
  6. CALTRATE (CALCIUM CARBONATE) [Concomitant]
     Dosage: UNK, QD
     Dates: start: 1995

REACTIONS (22)
  - Intramedullary rod insertion [Not Recovered/Not Resolved]
  - Device failure [Not Recovered/Not Resolved]
  - Open reduction of fracture [Not Recovered/Not Resolved]
  - Low turnover osteopathy [Not Recovered/Not Resolved]
  - Medical device removal [Not Recovered/Not Resolved]
  - Medical device removal [Not Recovered/Not Resolved]
  - Fracture nonunion [Not Recovered/Not Resolved]
  - Femur fracture [Not Recovered/Not Resolved]
  - Overdose [Unknown]
  - Device failure [Unknown]
  - Gastric disorder [Unknown]
  - Blood glucose increased [Unknown]
  - Osteoporosis [Unknown]
  - Impaired healing [Unknown]
  - Neck mass [Unknown]
  - Atrophy [Unknown]
  - Uterine cervix stenosis [Unknown]
  - Hypothyroidism [Unknown]
  - Thyroid neoplasm [Unknown]
  - Osteoarthritis [Unknown]
  - Herpes zoster [Unknown]
  - Drug ineffective [Unknown]
